FAERS Safety Report 14084240 (Version 1)
Quarter: 2017Q4

REPORT INFORMATION
  Report Type: Report from Study
  Country: None (occurrence: BR)
  Receive Date: 20171013
  Receipt Date: 20171013
  Transmission Date: 20180321
  Serious: Yes (Other)
  Sender: FDA-Public Use
  Company Number: BR-ABBVIE-17K-020-2124255-00

PATIENT
  Sex: Female
  Weight: 80 kg

DRUGS (5)
  1. ARADOIS [Concomitant]
     Active Substance: LOSARTAN POTASSIUM
     Indication: HYPERTENSION
  2. HUMIRA [Suspect]
     Active Substance: ADALIMUMAB
     Indication: PSORIATIC ARTHROPATHY
     Route: 058
     Dates: start: 20150330
  3. HUMIRA [Suspect]
     Active Substance: ADALIMUMAB
     Route: 058
  4. IBUPROFEN. [Concomitant]
     Active Substance: IBUPROFEN
     Indication: PAIN
  5. CORTISONE [Suspect]
     Active Substance: CORTISONE\HYDROCORTISONE
     Indication: RHEUMATOID ARTHRITIS
     Route: 065

REACTIONS (16)
  - Accident [Unknown]
  - Lower limb fracture [Unknown]
  - Sinusitis [Unknown]
  - Retinal haemorrhage [Not Recovered/Not Resolved]
  - Glaucoma [Not Recovered/Not Resolved]
  - Rheumatoid arthritis [Unknown]
  - Psoriasis [Unknown]
  - Blindness [Not Recovered/Not Resolved]
  - Hand fracture [Unknown]
  - Diabetes mellitus [Not Recovered/Not Resolved]
  - Urinary tract infection bacterial [Unknown]
  - Intraocular pressure increased [Not Recovered/Not Resolved]
  - Face injury [Unknown]
  - Weight decreased [Not Recovered/Not Resolved]
  - Foot fracture [Unknown]
  - Drug ineffective [Unknown]

NARRATIVE: CASE EVENT DATE: 2015
